FAERS Safety Report 19532592 (Version 1)
Quarter: 2021Q3

REPORT INFORMATION
  Report Type: Spontaneous
  Country: US (occurrence: US)
  Receive Date: 20210713
  Receipt Date: 20210713
  Transmission Date: 20211014
  Serious: Yes (Other)
  Sender: FDA-Public Use
  Company Number: US-SYNEX-T202103023

PATIENT
  Age: 47 Year
  Sex: Male

DRUGS (9)
  1. DOBUTAMINE [Concomitant]
     Active Substance: DOBUTAMINE HYDROCHLORIDE
     Indication: PORTOPULMONARY HYPERTENSION
     Dosage: UNK, LOW DOSE
     Route: 065
  2. PHENYLEPHRINE [Concomitant]
     Active Substance: PHENYLEPHRINE HYDROCHLORIDE
     Indication: SHOCK
     Dosage: UNK
     Route: 065
  3. VASOPRESSIN. [Concomitant]
     Active Substance: VASOPRESSIN
     Indication: PRODUCT USED FOR UNKNOWN INDICATION
     Dosage: UNK
     Route: 065
  4. INOMAX [Suspect]
     Active Substance: NITRIC OXIDE
     Indication: PORTOPULMONARY HYPERTENSION
     Dosage: UNK (INHALATION)
     Route: 055
  5. MIDAZOLAM. [Concomitant]
     Active Substance: MIDAZOLAM
     Indication: ANAESTHESIA
     Dosage: UNK
     Route: 065
  6. NOR ADRENALIN [Concomitant]
     Indication: PRODUCT USED FOR UNKNOWN INDICATION
     Dosage: UNK (LOW DOSE)
     Route: 065
  7. DOBUTAMINE [Concomitant]
     Active Substance: DOBUTAMINE HYDROCHLORIDE
     Indication: RESPIRATORY FAILURE
  8. INOMAX [Suspect]
     Active Substance: NITRIC OXIDE
     Indication: RESPIRATORY FAILURE
  9. PROPOFOL. [Concomitant]
     Active Substance: PROPOFOL
     Indication: ANAESTHESIA
     Dosage: UNK
     Route: 065

REACTIONS (4)
  - Product use in unapproved indication [Unknown]
  - Liver injury [Recovering/Resolving]
  - Product use issue [Unknown]
  - Acute kidney injury [Recovering/Resolving]
